FAERS Safety Report 9199674 (Version 1)
Quarter: 2013Q1

REPORT INFORMATION
  Report Type: Spontaneous
  Country: US (occurrence: None)
  Receive Date: 20130326
  Receipt Date: 20130326
  Transmission Date: 20140127
  Serious: Yes (Hospitalization)
  Sender: FDA-Public Use
  Company Number: SYM-2013-01964

PATIENT
  Age: 52 Year
  Sex: Male

DRUGS (5)
  1. BUPROPION HYDROCHLORIDE [Suspect]
     Indication: SMOKING CESSATION THERAPY
     Route: 048
     Dates: start: 20120703, end: 20120924
  2. VARENICLINE TARTRATE [Suspect]
     Indication: SMOKING CESSATION THERAPY
     Dates: start: 20120703, end: 20120924
  3. NICOTINE [Suspect]
     Indication: SMOKING CESSATION THERAPY
     Dates: start: 20120703, end: 20120924
  4. PLACEBO (PLACEBO) [Suspect]
     Indication: SMOKING CESSATION THERAPY
     Dates: start: 20120703, end: 20120924
  5. IBUPROFEN ( IBUPROFEN) ( IBUPROFEN) [Concomitant]

REACTIONS (2)
  - Coronary artery occlusion [None]
  - Chest pain [None]
